FAERS Safety Report 15046546 (Version 1)
Quarter: 2018Q2

REPORT INFORMATION
  Report Type: Spontaneous
  Country: VN (occurrence: VN)
  Receive Date: 20180621
  Receipt Date: 20180621
  Transmission Date: 20180711
  Serious: Yes (Hospitalization)
  Sender: FDA-Public Use
  Company Number: VN-009507513-1806VNM006504

PATIENT
  Age: 45 Year
  Sex: Female

DRUGS (5)
  1. PROFOL (PROPOFOL) [Concomitant]
     Dosage: D2, 200 MG/20 ML
     Dates: start: 20180605, end: 20180605
  2. DOLARGAN [Concomitant]
     Dosage: D2, 100 MG/2 ML
     Dates: start: 20180605, end: 20180605
  3. ESMERON [Suspect]
     Active Substance: ROCURONIUM BROMIDE
     Dosage: 0.6 MG/KG, UNK
     Dates: start: 20180605, end: 20180605
  4. DIMEDROL [Concomitant]
     Active Substance: DIPHENHYDRAMINE
     Dosage: D2, 20 MG/2 ML
     Dates: start: 20180605, end: 20180605
  5. ATROPINE. [Concomitant]
     Active Substance: ATROPINE
     Dosage: D2, 0.25 MG/ML
     Dates: start: 20180605, end: 20180605

REACTIONS (2)
  - Respiratory disorder [Unknown]
  - Rash [Unknown]

NARRATIVE: CASE EVENT DATE: 20180605
